FAERS Safety Report 10017292 (Version 1)
Quarter: 2014Q1

REPORT INFORMATION
  Report Type: Spontaneous
  Country: US (occurrence: None)
  Receive Date: 20140313
  Receipt Date: 20140313
  Transmission Date: 20141002
  Serious: Yes (Other)
  Sender: FDA-Public Use
  Company Number: None

PATIENT
  Age: 41 Year
  Sex: Male
  Weight: 77.11 kg

DRUGS (1)
  1. DOXYCYCLINE HYCLATE [Suspect]
     Indication: INFECTED CYST
     Dosage: 1 PILL MORNING, 1 PILL NIGHT
     Route: 048
     Dates: start: 20140305, end: 20140311

REACTIONS (3)
  - Headache [None]
  - Sleep disorder [None]
  - Pyrexia [None]
